FAERS Safety Report 20106479 (Version 5)
Quarter: 2022Q1

REPORT INFORMATION
  Report Type: Report from Study
  Country: CA (occurrence: CA)
  Receive Date: 20211124
  Receipt Date: 20220329
  Transmission Date: 20220424
  Serious: Yes (Other)
  Sender: FDA-Public Use
  Company Number: CA-BAUSCH-BL-2021-025361

PATIENT
  Age: 78 Year
  Sex: Male

DRUGS (4)
  1. SILIQ [Suspect]
     Active Substance: BRODALUMAB
     Indication: Psoriasis
     Dosage: 210 MG /1.5 ML, WEEKLY (WEEK 0,1 AND 2)
     Route: 058
     Dates: start: 20210629, end: 20210720
  2. SILIQ [Suspect]
     Active Substance: BRODALUMAB
     Dosage: 210 MG / 1.5 ML,
     Route: 058
     Dates: start: 202107
  3. SILIQ [Suspect]
     Active Substance: BRODALUMAB
     Dosage: 210 MG / 1.5 ML, Q2WEEKS
     Route: 058
     Dates: start: 2021
  4. SILIQ [Suspect]
     Active Substance: BRODALUMAB
     Dosage: 210 MG / 1.5 ML, Q2WEEKS
     Route: 058
     Dates: start: 20220308

REACTIONS (7)
  - Cataract [Unknown]
  - Oropharyngeal discomfort [Unknown]
  - Psoriasis [Not Recovered/Not Resolved]
  - Disease recurrence [Not Recovered/Not Resolved]
  - Scab [Unknown]
  - Headache [Unknown]
  - Inappropriate schedule of product administration [Unknown]

NARRATIVE: CASE EVENT DATE: 20210101
